FAERS Safety Report 24243474 (Version 1)
Quarter: 2024Q3

REPORT INFORMATION
  Report Type: Spontaneous
  Country: IT (occurrence: IT)
  Receive Date: 20240823
  Receipt Date: 20240823
  Transmission Date: 20241017
  Serious: Yes (Other)
  Sender: The J.Molner Company
  Company Number: IT-THE J. MOLNER COMPANY-202408000020

PATIENT

DRUGS (2)
  1. HYDROCORTISONE BUTYRATE [Suspect]
     Active Substance: HYDROCORTISONE BUTYRATE
     Indication: Addison^s disease
     Route: 065
  2. FLUDROCORTISONE [Suspect]
     Active Substance: FLUDROCORTISONE
     Indication: Addison^s disease

REACTIONS (2)
  - Right ventricular failure [Recovered/Resolved]
  - Hypokalaemia [Recovered/Resolved]
